FAERS Safety Report 4951037-5 (Version None)
Quarter: 2006Q1

REPORT INFORMATION
  Report Type: 
  Country: None (occurrence: None)
  Receive Date: 20060313
  Receipt Date: 20060223
  Transmission Date: 20060701
  Serious: Yes (Death)
  Sender: FDA-Public Use
  Company Number: T05-FIN-02354-01

PATIENT
  Age: 44 Year
  Sex: Male

DRUGS (3)
  1. CIPRALEX (ESCITALOPRAM) [Suspect]
     Indication: ALCOHOLISM
     Dosage: 20 MG QD
     Dates: start: 20050309, end: 20050101
  2. CIPRALEX (ESCITALOPRAM) [Suspect]
     Indication: DEPRESSION
     Dosage: 20 MG QD
     Dates: start: 20050309, end: 20050101
  3. VIAGRA [Concomitant]

REACTIONS (14)
  - ACCIDENTAL DEATH [None]
  - ACCIDENTAL POISONING [None]
  - ALCOHOL INTERACTION [None]
  - CARDIOMEGALY [None]
  - CONTUSION [None]
  - DRUG INTERACTION [None]
  - DRUG LEVEL BELOW THERAPEUTIC [None]
  - DRUG SCREEN POSITIVE [None]
  - DRUG TOXICITY [None]
  - EXCORIATION [None]
  - HYPERGLYCAEMIA [None]
  - LACTIC ACIDOSIS [None]
  - SCAR [None]
  - SUDDEN DEATH [None]
